FAERS Safety Report 6388908-1 (Version None)
Quarter: 2009Q4

REPORT INFORMATION
  Report Type: 
  Country: None (occurrence: None)
  Receive Date: 20091001
  Receipt Date: 20090923
  Transmission Date: 20100525
  Serious: Yes (Hospitalization)
  Sender: FDA-Public Use
  Company Number: WAES 0907USA00306

PATIENT
  Age: 73 Year
  Sex: Male

DRUGS (6)
  1. CAP VORINOSTAT [Suspect]
     Indication: MULTIPLE MYELOMA
     Dosage: 400 MG, PO
     Dates: start: 20090526, end: 20090614
  2. BORTEZOMIB [Suspect]
     Indication: MULTIPLE MYELOMA
     Dosage: 2.11 MG, IV;  2.17 MG; IV 1.63 MG, IV
     Route: 042
     Dates: start: 20090526, end: 20090605
  3. BORTEZOMIB [Suspect]
     Indication: MULTIPLE MYELOMA
     Dosage: 2.11 MG, IV;  2.17 MG; IV 1.63 MG, IV
     Route: 042
     Dates: start: 20090616, end: 20090626
  4. BORTEZOMIB [Suspect]
     Indication: MULTIPLE MYELOMA
     Dosage: 2.11 MG, IV;  2.17 MG; IV 1.63 MG, IV
     Route: 042
     Dates: start: 20090707, end: 20090717
  5. MEPTIN [Concomitant]
  6. SERETIDE [Concomitant]

REACTIONS (4)
  - ASTHENIA [None]
  - CHRONIC OBSTRUCTIVE PULMONARY DISEASE [None]
  - RENAL FAILURE [None]
  - SYNCOPE [None]
